FAERS Safety Report 9026144 (Version 2)
Quarter: 2013Q1

REPORT INFORMATION
  Report Type: Spontaneous
  Country: CA (occurrence: None)
  Receive Date: 20130107
  Receipt Date: 20130111
  Transmission Date: 20140127
  Serious: Yes (Hospitalization, Other)
  Sender: FDA-Public Use
  Company Number: MC201200715

PATIENT
  Age: 53 Year
  Sex: Female

DRUGS (7)
  1. ANGIOMAX [Suspect]
     Indication: PERCUTANEOUS CORONARY INTERVENTION
     Route: 040
     Dates: start: 20120505, end: 20120505
  2. HYDROCHLOROTHIAZIDE W/IRBESARTAN (HYDROCHLOROTHIAZIDE W/IRBESARTAN) [Concomitant]
  3. AMLODIPINE (AMLODIPINE BESILATE) [Concomitant]
  4. PRASUGREL (PRASUGREL) [Concomitant]
  5. ASPIRIN (ACETYLSALICYLIC ACID) [Concomitant]
  6. NITROGLYCERIN (NITROGLYCERIN) RECTAL OINTMENT [Concomitant]
  7. NITROPRUSSIDE (NITROPRUSSIDE) [Concomitant]

REACTIONS (5)
  - Acute myocardial infarction [None]
  - Thrombosis in device [None]
  - Bradycardia [None]
  - Nausea [None]
  - Vomiting [None]
